FAERS Safety Report 14596444 (Version 2)
Quarter: 2018Q1

REPORT INFORMATION
  Report Type: Report from Study
  Country: IN (occurrence: IN)
  Receive Date: 20180303
  Receipt Date: 20180308
  Transmission Date: 20180509
  Serious: Yes (Death, Hospitalization)
  Sender: FDA-Public Use
  Company Number: PHHY2016IN020963

PATIENT
  Sex: Female

DRUGS (1)
  1. GLIVEC [Suspect]
     Active Substance: IMATINIB MESYLATE
     Indication: CHRONIC MYELOID LEUKAEMIA
     Dosage: 400 MG, UNK
     Route: 065

REACTIONS (7)
  - Thrombocytopenia [Unknown]
  - Weight increased [Unknown]
  - Pyrexia [Unknown]
  - Lung infiltration [Unknown]
  - Anaemia [Unknown]
  - Sepsis [Fatal]
  - Cough [Unknown]
